FAERS Safety Report 5484012-5 (Version None)
Quarter: 2007Q4

REPORT INFORMATION
  Report Type: 
  Country: None (occurrence: None)
  Receive Date: 20071012
  Receipt Date: 20071001
  Transmission Date: 20080405
  Serious: Yes (Hospitalization)
  Sender: FDA-Public Use
  Company Number: GB-ROCHE-512529

PATIENT
  Age: 76 Year
  Sex: Female
  Weight: 108 kg

DRUGS (24)
  1. ORLISTAT [Suspect]
     Indication: OBESITY
     Route: 048
     Dates: start: 20070312
  2. CITALOPRAM HYDROBROMIDE [Concomitant]
     Indication: DEPRESSION
     Route: 048
  3. PARACETAMOL [Concomitant]
     Indication: PAIN
     Dosage: ONE OR TWO WHEN REQUIRED FORU TIMES A DAY.
     Route: 048
     Dates: start: 20070718
  4. VIOXX [Concomitant]
     Indication: PAIN
     Route: 048
  5. LANSOPRAZOLE [Concomitant]
     Indication: ANTACID THERAPY
     Dosage: FORM: CAPSULE (EC GRANS). DOSAGE: ONE EVERY MORNING.
     Route: 048
  6. AMLODIPINE [Concomitant]
     Indication: HYPERTENSION
     Route: 048
  7. RAMIPRIL [Concomitant]
     Indication: HYPERTENSION
     Route: 048
  8. METFORMIN HCL [Concomitant]
     Route: 048
  9. QUININE BISULPHATE [Concomitant]
     Dosage: ONE AT NIGHT.
     Route: 048
  10. SIMVASTATIN [Concomitant]
     Route: 048
  11. LEVOTHYROXINE SODIUM [Concomitant]
     Indication: HYPOTHYROIDISM
     Dosage: IN THE MORNING.
     Route: 048
  12. NICORANDIL [Concomitant]
     Indication: ANGINA PECTORIS
     Route: 048
  13. PRAZOSIN HCL [Concomitant]
     Indication: HYPERTENSION
     Dosage: DRUG REPORTED AS PRAZOCIN.
     Route: 048
  14. ALENDRONATE SODIUM [Concomitant]
     Indication: OSTEOPOROSIS
     Dosage: DRUG REPORTED AS ALENDRONATE. DOSAGE: IN THE MORNING, TAKE STANDING UP WITH WATER.
     Route: 048
  15. GLYCERYL TRINITRATE [Concomitant]
     Indication: ANGINA PECTORIS
     Dosage: CFC FREE PUMP SPRAY. REPORTED FORMULATION: PUFF. STRENGHT: 400 MCG/DOSE. ONE OR TWO DISSOLVED UNDER+
     Route: 060
  16. ALLOPURINOL [Concomitant]
     Indication: GOUT
     Route: 048
  17. FRUSEMIDE [Concomitant]
     Indication: FLUID RETENTION
     Route: 048
  18. BECLOMETHASONE DIPROPIONATE [Concomitant]
     Dosage: DRUG REPORTED AS BECLOMETASONE AQUEOUS NASAL SPRAY. DOSAGE REGIMEN REPORTED AS 2 OR 4 EACH NOSTIRIL+
  19. DOXAZOSIN MESYLATE [Concomitant]
  20. DORZOLAMIDE HCL [Concomitant]
     Dosage: FORM: EYE DROPS.
  21. CODEINE PHOSPHATE [Concomitant]
     Dosage: DOSAGE REGIMEN: ONE OR TWO WHEN REQUIRED FOUR OR SIX HOURLY SPARINGLY.
  22. 1 CONCOMITANT DRUG [Concomitant]
     Dosage: DRUG REPORTED AS XISMOX XL. DOSAGE REGIMEN: IN THE MORNING.
  23. BIMATOPROST [Concomitant]
     Dosage: FORM: EYE DROPS.
  24. TIMODINE [Concomitant]

REACTIONS (1)
  - FALL [None]
